FAERS Safety Report 4266872-9 (Version None)
Quarter: 2004Q1

REPORT INFORMATION
  Report Type: 
  Country: None (occurrence: None)
  Receive Date: 20040108
  Receipt Date: 20040108
  Transmission Date: 20041129
  Serious: Yes (Death, Hospitalization, Other)
  Sender: FDA-Public Use
  Company Number: None

PATIENT
  Sex: Male
  Weight: 101.1521 kg

DRUGS (2)
  1. TAXOTERE [Suspect]
     Indication: NON-SMALL CELL LUNG CANCER
     Dosage: 75MG/M2 Q 3 WEEKS INTRAVENOUS
     Route: 042
     Dates: start: 20010223, end: 20010326
  2. CELEBREX [Suspect]
     Dosage: 400 MG BID ORAL
     Route: 048
     Dates: start: 20010223, end: 20010326

REACTIONS (8)
  - CARCINOMA [None]
  - CARDIAC FAILURE CONGESTIVE [None]
  - CARDIAC TAMPONADE [None]
  - COUGH [None]
  - DYSPNOEA [None]
  - HYPERSENSITIVITY [None]
  - PERICARDIAL EFFUSION [None]
  - RESPIRATORY DISTRESS [None]
